FAERS Safety Report 5866226-5 (Version None)
Quarter: 2008Q3

REPORT INFORMATION
  Report Type: 
  Country: None (occurrence: None)
  Receive Date: 20080829
  Receipt Date: 20080819
  Transmission Date: 20090109
  Serious: Yes (Other)
  Sender: FDA-Public Use
  Company Number: US-PFIZER INC-2008070123

PATIENT
  Sex: Female
  Weight: 81.2 kg

DRUGS (5)
  1. CHANTIX [Suspect]
     Indication: SMOKING CESSATION THERAPY
     Route: 048
     Dates: start: 20080729, end: 20080804
  2. INSULIN [Concomitant]
  3. PENICILLIN [Concomitant]
     Indication: ABSCESS
  4. POTASSIUM CHLORIDE [Concomitant]
  5. ALL OTHER THERAPEUTIC PRODUCTS [Concomitant]
     Indication: DIABETES MELLITUS

REACTIONS (5)
  - BLOOD POTASSIUM DECREASED [None]
  - GAIT DISTURBANCE [None]
  - JOINT RANGE OF MOTION DECREASED [None]
  - JOINT SWELLING [None]
  - OEDEMA PERIPHERAL [None]
